FAERS Safety Report 7357010-4 (Version None)
Quarter: 2011Q1

REPORT INFORMATION
  Report Type: 
  Country: None (occurrence: None)
  Receive Date: 20110317
  Receipt Date: 20110309
  Transmission Date: 20110831
  Serious: Yes (Hospitalization)
  Sender: FDA-Public Use
  Company Number: US-TEVA-269229USA

PATIENT
  Sex: Female
  Weight: 68.5 kg

DRUGS (9)
  1. CARBOPLATIN [Suspect]
     Indication: HEAD AND NECK CANCER
     Route: 042
     Dates: start: 20101215, end: 20110217
  2. METOPROLOL TARTRATE [Concomitant]
  3. MAGNESIUM OXIDE [Concomitant]
  4. FLUOROURACIL [Suspect]
     Indication: HEAD AND NECK CANCER
     Route: 042
     Dates: start: 20101215, end: 20110217
  5. PROCHLORPERAZINE EDISYLATE [Concomitant]
  6. FENTANYL [Concomitant]
     Indication: PAIN
     Route: 061
  7. VICODIN [Concomitant]
  8. SULFASALAZINE [Concomitant]
  9. CETUXIMAB [Suspect]
     Indication: HEAD AND NECK CANCER
     Route: 042
     Dates: start: 20101215, end: 20110217

REACTIONS (1)
  - PNEUMONIA [None]
